FAERS Safety Report 6881998-9 (Version None)
Quarter: 2010Q3

REPORT INFORMATION
  Report Type: 
  Country: None (occurrence: None)
  Receive Date: 20100729
  Receipt Date: 20100720
  Transmission Date: 20110219
  Serious: Yes (Other)
  Sender: FDA-Public Use
  Company Number: FR-PFIZER INC-2010084601

PATIENT
  Age: 81 Year
  Sex: Male
  Weight: 72 kg

DRUGS (2)
  1. AMLOR [Suspect]
     Indication: HYPERTENSION
     Dosage: 10 MG, 1X/DAY
     Route: 048
  2. AMLOR [Suspect]
     Indication: CARDIAC FAILURE

REACTIONS (3)
  - IRON BINDING CAPACITY TOTAL DECREASED [None]
  - RESTLESS LEGS SYNDROME [None]
  - SERUM FERRITIN DECREASED [None]
